FAERS Safety Report 9104164 (Version 1)
Quarter: 2013Q1

REPORT INFORMATION
  Report Type: Spontaneous
  Country: ES (occurrence: ES)
  Receive Date: 20130219
  Receipt Date: 20130219
  Transmission Date: 20140127
  Serious: Yes (Death, Hospitalization)
  Sender: FDA-Public Use
  Company Number: PHHY2013ES015726

PATIENT
  Age: 66 Year
  Sex: Male
  Weight: 87 kg

DRUGS (15)
  1. BASILIXIMAB [Suspect]
     Dosage: 20 MG, UNK
     Dates: start: 20120203
  2. BASILIXIMAB [Suspect]
     Dosage: 20 MG, UNK
     Dates: start: 20120207
  3. EVEROLIMUS [Concomitant]
     Indication: IMMUNOSUPPRESSION
  4. TACROLIMUS [Concomitant]
     Indication: IMMUNOSUPPRESSION
     Dosage: UNK UKN, UNK
     Dates: start: 201101
  5. TACROLIMUS [Concomitant]
     Dosage: 8 MG, UNK
     Dates: start: 20120123, end: 20120127
  6. TACROLIMUS [Concomitant]
     Dosage: 10 MG, UNK
     Dates: start: 20120127, end: 20120203
  7. TACROLIMUS [Concomitant]
     Dosage: 20 MG, UNK
     Dates: start: 20120203, end: 20120213
  8. MYCOPHENOLATE MOFETIL [Concomitant]
     Indication: IMMUNOSUPPRESSION
  9. METHYLPREDNISOLONE [Concomitant]
     Indication: IMMUNOSUPPRESSION
     Dosage: UNK UKN, UNK
  10. METHYLPREDNISOLONE [Concomitant]
     Dosage: 500 ML, UNK
  11. METHYLPREDNISOLONE [Concomitant]
     Dosage: 80 MG, UNK
     Dates: start: 20120123
  12. METHYLPREDNISOLONE [Concomitant]
     Dosage: 88 NG/DL
     Dates: start: 20120130
  13. METHYLPREDNISOLONE [Concomitant]
     Dosage: 40 MG, UNK
     Dates: start: 20120206
  14. METHYLPREDNISOLONE [Concomitant]
     Dosage: 80 MG, UNK
     Dates: start: 20120219
  15. CYCLOSPORINE [Concomitant]
     Indication: IMMUNOSUPPRESSION

REACTIONS (8)
  - Pulmonary oedema [Fatal]
  - Acute coronary syndrome [Fatal]
  - Cardiac failure [Fatal]
  - Diffuse alveolar damage [Unknown]
  - Pulmonary alveolar haemorrhage [Unknown]
  - Myocardial ischaemia [Unknown]
  - Toxicity to various agents [Unknown]
  - Opportunistic infection [Unknown]
